FAERS Safety Report 14365588 (Version 7)
Quarter: 2018Q3

REPORT INFORMATION
  Report Type: Report from Study
  Country: FR (occurrence: FR)
  Receive Date: 20180109
  Receipt Date: 20180704
  Transmission Date: 20181010
  Serious: Yes (Death, Other)
  Sender: FDA-Public Use
  Company Number: FR-BRISTOL-MYERS SQUIBB COMPANY-BMS-2017-016643

PATIENT
  Age: 56 Year
  Sex: Male

DRUGS (4)
  1. AERIUS                             /01009701/ [Concomitant]
     Active Substance: EBASTINE
     Indication: PRODUCT USED FOR UNKNOWN INDICATION
     Route: 065
  2. LOCAPRED [Concomitant]
     Active Substance: DESONIDE
     Indication: PRODUCT USED FOR UNKNOWN INDICATION
     Route: 065
  3. ATARAX [Concomitant]
     Active Substance: HYDROXYZINE HYDROCHLORIDE
     Indication: PRURITUS
     Route: 065
  4. NIVOLUMAB [Suspect]
     Active Substance: NIVOLUMAB
     Indication: LUNG NEOPLASM MALIGNANT
     Dosage: 210 MG, Q2WK
     Route: 042
     Dates: start: 20161118, end: 20170314

REACTIONS (8)
  - Encephalopathy [Recovered/Resolved]
  - Chest pain [Not Recovered/Not Resolved]
  - Malignant neoplasm progression [Unknown]
  - Pruritus [Recovered/Resolved]
  - Neck pain [Not Recovered/Not Resolved]
  - Cardiovascular disorder [Fatal]
  - Partial seizures [Recovered/Resolved]
  - Polyneuropathy [Recovered/Resolved]

NARRATIVE: CASE EVENT DATE: 20161202
